FAERS Safety Report 13737088 (Version 2)
Quarter: 2017Q4

REPORT INFORMATION
  Report Type: Report from Study
  Country: US (occurrence: US)
  Receive Date: 20170710
  Receipt Date: 20171003
  Transmission Date: 20180320
  Serious: Yes (Hospitalization)
  Sender: FDA-Public Use
  Company Number: US-JNJFOC-20170704597

PATIENT
  Sex: Male

DRUGS (1)
  1. IMBRUVICA [Suspect]
     Active Substance: IBRUTINIB
     Indication: LEUKAEMIA
     Route: 048

REACTIONS (3)
  - Hypophagia [Not Recovered/Not Resolved]
  - Renal disorder [Not Recovered/Not Resolved]
  - Dehydration [Not Recovered/Not Resolved]
